FAERS Safety Report 6354915-8 (Version None)
Quarter: 2009Q3

REPORT INFORMATION
  Report Type: 
  Country: None (occurrence: None)
  Receive Date: 20090914
  Receipt Date: 20090903
  Transmission Date: 20100115
  Serious: Yes (Other)
  Sender: FDA-Public Use
  Company Number: A0806826A

PATIENT
  Sex: Female

DRUGS (3)
  1. NICODERM [Suspect]
     Indication: SMOKING CESSATION THERAPY
     Route: 062
  2. NICORETTE [Suspect]
     Indication: SMOKING CESSATION THERAPY
     Route: 002
  3. NICORETTE [Suspect]
     Route: 002

REACTIONS (4)
  - DELIRIUM [None]
  - DRUG ADMINISTRATION ERROR [None]
  - FORMICATION [None]
  - STRESS [None]
